FAERS Safety Report 10252012 (Version 6)
Quarter: 2014Q3

REPORT INFORMATION
  Report Type: Report from Study
  Country: PL (occurrence: PL)
  Receive Date: 20140623
  Receipt Date: 20140812
  Transmission Date: 20150326
  Serious: Yes (Other)
  Sender: FDA-Public Use
  Company Number: PHHO2014PL008680

PATIENT

DRUGS (1)
  1. ACZ885 [Suspect]
     Active Substance: CANAKINUMAB
     Indication: JUVENILE IDIOPATHIC ARTHRITIS
     Dosage: 0.29 ML, UNK
     Route: 058
     Dates: start: 20130807

REACTIONS (2)
  - Gastroenteritis salmonella [Recovered/Resolved with Sequelae]
  - Salmonella sepsis [Recovered/Resolved with Sequelae]

NARRATIVE: CASE EVENT DATE: 20140614
